FAERS Safety Report 11982357 (Version 1)
Quarter: 2016Q1

REPORT INFORMATION
  Report Type: Spontaneous
  Country: FR (occurrence: FR)
  Receive Date: 20160201
  Receipt Date: 20160201
  Transmission Date: 20160526
  Serious: Yes (Hospitalization, Other)
  Sender: FDA-Public Use
  Company Number: FR-TEVA-631109ISR

PATIENT
  Age: 47 Year
  Sex: Female

DRUGS (4)
  1. NALMEFENE [Interacting]
     Active Substance: NALMEFENE
     Route: 048
  2. BUPRENORPHINE. [Suspect]
     Active Substance: BUPRENORPHINE
     Indication: DRUG DEPENDENCE
  3. BROMAZEPAM [Concomitant]
     Active Substance: BROMAZEPAM
     Indication: DRUG WITHDRAWAL SYNDROME
  4. ETHANOL [Concomitant]
     Active Substance: ALCOHOL
     Indication: DRUG WITHDRAWAL SYNDROME

REACTIONS (3)
  - Drug interaction [Recovering/Resolving]
  - Drug withdrawal syndrome [Recovering/Resolving]
  - Drug prescribing error [Recovering/Resolving]
